FAERS Safety Report 8737689 (Version 2)
Quarter: 2013Q4

REPORT INFORMATION
  Report Type: Spontaneous
  Country: US (occurrence: US)
  Receive Date: 20120822
  Receipt Date: 20131101
  Transmission Date: 20140711
  Serious: No
  Sender: FDA-Public Use
  Company Number: US-009507513-1206USA03895

PATIENT
  Sex: Female

DRUGS (3)
  1. TIMOPTIC [Suspect]
     Indication: GLAUCOMA
     Dosage: UNK, QAM
     Route: 047
     Dates: start: 20110222, end: 20110503
  2. LUMIGAN [Suspect]
     Dosage: UNK
     Route: 047
     Dates: start: 201103, end: 20110503
  3. ZIOPTAN [Suspect]
     Dosage: UNK, QH
     Route: 047

REACTIONS (5)
  - Obstructive airways disorder [Recovered/Resolved]
  - Drug hypersensitivity [Recovered/Resolved]
  - Drug hypersensitivity [Recovered/Resolved]
  - Ocular hyperaemia [Recovering/Resolving]
  - Eye irritation [Unknown]
